FAERS Safety Report 10817825 (Version 4)
Quarter: 2015Q3

REPORT INFORMATION
  Report Type: Spontaneous
  Country: FR (occurrence: FR)
  Receive Date: 20150218
  Receipt Date: 20150824
  Transmission Date: 20151125
  Serious: Yes (Death, Hospitalization)
  Sender: FDA-Public Use
  Company Number: FR-JNJFOC-20150209146

PATIENT
  Age: 70 Year
  Sex: Male

DRUGS (4)
  1. DESLORATADINE. [Concomitant]
     Active Substance: DESLORATADINE
  2. ACEBUTOLOL [Concomitant]
     Active Substance: ACEBUTOLOL
  3. IMBRUVICA [Suspect]
     Active Substance: IBRUTINIB
     Indication: CHRONIC LYMPHOCYTIC LEUKAEMIA
     Route: 048
     Dates: start: 201404, end: 20150203
  4. ZELITREX [Concomitant]
     Active Substance: VALACYCLOVIR HYDROCHLORIDE

REACTIONS (7)
  - Septic shock [Fatal]
  - Influenza [Fatal]
  - Pruritus [Recovered/Resolved]
  - Skin ulcer [Recovered/Resolved]
  - Scab [Recovered/Resolved]
  - Lower respiratory tract infection bacterial [Fatal]
  - Erythema [Recovered/Resolved]

NARRATIVE: CASE EVENT DATE: 201412
